FAERS Safety Report 8587638-5 (Version None)
Quarter: 2012Q3

REPORT INFORMATION
  Report Type: 
  Country: None (occurrence: None)
  Receive Date: 20120811
  Receipt Date: 20120731
  Transmission Date: 20120928
  Serious: No
  Sender: FDA-Public Use
  Company Number: US-ASTRAZENECA-2012SE54151

PATIENT
  Age: 55 Year
  Sex: Female

DRUGS (1)
  1. SYMBICORT [Suspect]
     Dosage: 160/4.5 MCG TWO INHAILATIONS TWO TIMES A DAY
     Route: 055
     Dates: end: 20120722

REACTIONS (5)
  - ORAL DYSAESTHESIA [None]
  - TONGUE DISCOLOURATION [None]
  - EAR PRURITUS [None]
  - GLOSSITIS [None]
  - SWOLLEN TONGUE [None]
